FAERS Safety Report 6098691-5 (Version None)
Quarter: 2009Q1

REPORT INFORMATION
  Report Type: 
  Country: None (occurrence: None)
  Receive Date: 20090302
  Receipt Date: 20090216
  Transmission Date: 20090719
  Serious: Yes (Other)
  Sender: FDA-Public Use
  Company Number: JP-ASTRAZENECA-2008AP09406

PATIENT
  Age: 22332 Day
  Sex: Female

DRUGS (19)
  1. MEROPEN [Suspect]
     Indication: INFECTION
     Route: 041
     Dates: start: 20080303, end: 20080315
  2. MEROPEN [Suspect]
     Indication: TOXIC SKIN ERUPTION
     Route: 041
     Dates: start: 20080303, end: 20080315
  3. PREDONINE [Concomitant]
     Indication: TOXIC SKIN ERUPTION
     Route: 048
     Dates: start: 20080310, end: 20080326
  4. PREDONINE [Concomitant]
     Route: 048
     Dates: start: 20080301, end: 20080306
  5. ROCEPHIN [Concomitant]
     Indication: TOXIC SKIN ERUPTION
     Route: 042
     Dates: start: 20080301, end: 20080303
  6. CHLOR-TRIMETON [Concomitant]
     Indication: TOXIC SKIN ERUPTION
     Route: 042
     Dates: start: 20080301, end: 20080306
  7. NEO-MINOPHAGEN C [Concomitant]
     Indication: TOXIC SKIN ERUPTION
     Route: 042
     Dates: start: 20080301, end: 20080313
  8. GASTER [Concomitant]
     Indication: GASTRITIS
     Route: 048
     Dates: start: 20080301, end: 20080313
  9. VENOGLOBULIN [Concomitant]
     Indication: TOXIC SKIN ERUPTION
     Route: 042
     Dates: start: 20080304, end: 20080306
  10. LASIX [Concomitant]
     Indication: TOXIC SKIN ERUPTION
     Route: 042
     Dates: start: 20080306, end: 20080310
  11. ALBUMIN (HUMAN) [Concomitant]
     Indication: TOXIC SKIN ERUPTION
     Route: 042
     Dates: start: 20080306, end: 20080310
  12. SOLU-MEDROL [Concomitant]
     Indication: TOXIC SKIN ERUPTION
     Route: 042
     Dates: start: 20080307, end: 20080309
  13. NEOPHYLLIN [Concomitant]
     Indication: TOXIC SKIN ERUPTION
     Dates: start: 20080306, end: 20080310
  14. MINOCYCLINE HCL [Concomitant]
     Indication: TOXIC SKIN ERUPTION
     Route: 048
     Dates: start: 20080310, end: 20080313
  15. MINOCYCLINE HCL [Concomitant]
     Indication: INFECTION
     Route: 048
     Dates: start: 20080310, end: 20080313
  16. BAKTAR [Concomitant]
     Indication: TOXIC SKIN ERUPTION
     Route: 048
     Dates: start: 20080310, end: 20080313
  17. BAKTAR [Concomitant]
     Indication: INFECTION
     Route: 048
     Dates: start: 20080310, end: 20080313
  18. ALLEGRA [Concomitant]
     Indication: TOXIC SKIN ERUPTION
     Route: 048
     Dates: start: 20080311, end: 20080313
  19. ALLEGRA [Concomitant]
     Indication: INFECTION
     Route: 048
     Dates: start: 20080311, end: 20080313

REACTIONS (4)
  - DRUG RASH WITH EOSINOPHILIA AND SYSTEMIC SYMPTOMS [None]
  - PERICARDIAL EFFUSION [None]
  - PLEURAL EFFUSION [None]
  - WHEEZING [None]
